FAERS Safety Report 7532921-5 (Version None)
Quarter: 2011Q2

REPORT INFORMATION
  Report Type: 
  Country: None (occurrence: None)
  Receive Date: 20110607
  Receipt Date: 20110607
  Transmission Date: 20111010
  Serious: Yes (Other)
  Sender: FDA-Public Use
  Company Number: None

PATIENT
  Sex: Female
  Weight: 49.8957 kg

DRUGS (1)
  1. CLINDAMYCIN AND BENZOYL PEROXIDE [Suspect]
     Indication: ACNE
     Dates: start: 20110531, end: 20110601

REACTIONS (4)
  - URTICARIA [None]
  - ADVERSE REACTION [None]
  - ERYTHEMA [None]
  - RASH PRURITIC [None]
